FAERS Safety Report 23652277 (Version 1)
Quarter: 2024Q1

REPORT INFORMATION
  Report Type: Spontaneous
  Country: US (occurrence: US)
  Receive Date: 20240320
  Receipt Date: 20240320
  Transmission Date: 20240410
  Serious: No
  Sender: FDA-Public Use
  Company Number: US-SA-SAC20240315000466

PATIENT
  Sex: Female

DRUGS (4)
  1. DUPIXENT [Suspect]
     Active Substance: DUPILUMAB
     Indication: Dermatitis atopic
     Dosage: 200 MG, QOW
     Route: 058
  2. HYDROCORTISONE [Suspect]
     Active Substance: HYDROCORTISONE
  3. TACROLIMUS [Suspect]
     Active Substance: TACROLIMUS
  4. TRIAMCINOLONE [Suspect]
     Active Substance: TRIAMCINOLONE

REACTIONS (1)
  - Pruritus [Unknown]
